FAERS Safety Report 4989347-8 (Version None)
Quarter: 2006Q2

REPORT INFORMATION
  Report Type: 
  Country: None (occurrence: None)
  Receive Date: 20060426
  Receipt Date: 20060412
  Transmission Date: 20061013
  Serious: Yes (Other)
  Sender: FDA-Public Use
  Company Number: 2006051337

PATIENT
  Age: 34 Year
  Sex: Female

DRUGS (1)
  1. CYTOTEC [Suspect]
     Indication: ABORTION INDUCED
     Dosage: VAGINAL
     Route: 067
     Dates: start: 20060407

REACTIONS (2)
  - DRUG EXPOSURE DURING PREGNANCY [None]
  - INDUCED ABORTION FAILED [None]
